FAERS Safety Report 6818661-6 (Version None)
Quarter: 2010Q3

REPORT INFORMATION
  Report Type: 
  Country: None (occurrence: None)
  Receive Date: 20100706
  Receipt Date: 20081119
  Transmission Date: 20110219
  Serious: No
  Sender: FDA-Public Use
  Company Number: US-PFIZER INC-2008098578

PATIENT
  Sex: Male

DRUGS (2)
  1. ZITHROMAX [Interacting]
  2. LOPERAMIDE HCL [Suspect]

REACTIONS (2)
  - DIARRHOEA [None]
  - DRUG INTERACTION [None]
